FAERS Safety Report 25849180 (Version 1)
Quarter: 2025Q3

REPORT INFORMATION
  Report Type: Spontaneous
  Country: ID (occurrence: ID)
  Receive Date: 20250925
  Receipt Date: 20250925
  Transmission Date: 20251020
  Serious: Yes (Hospitalization, Other)
  Sender: VISTAPHARM
  Company Number: ID-VISTAPHARM-2025-ID-000009

PATIENT
  Age: 62 Year
  Sex: Male

DRUGS (1)
  1. ACYCLOVIR [Suspect]
     Active Substance: ACYCLOVIR
     Indication: Varicella zoster virus infection

REACTIONS (1)
  - Bradycardia [Recovered/Resolved]
